FAERS Safety Report 19025554 (Version 1)
Quarter: 2021Q1

REPORT INFORMATION
  Report Type: Report from Study
  Country: MX (occurrence: MX)
  Receive Date: 20210318
  Receipt Date: 20210318
  Transmission Date: 20210420
  Serious: Yes (Other)
  Sender: FDA-Public Use
  Company Number: NVSC2021MX055129

PATIENT
  Age: 51 Year
  Sex: Female
  Weight: 50 kg

DRUGS (1)
  1. TASIGNA [Suspect]
     Active Substance: NILOTINIB
     Indication: CHRONIC MYELOID LEUKAEMIA
     Dosage: 800 MG, QD
     Route: 048
     Dates: start: 20200303

REACTIONS (7)
  - Hepatomegaly [Unknown]
  - Autoimmune anaemia [Unknown]
  - Anaemia [Not Recovered/Not Resolved]
  - Gastritis [Not Recovered/Not Resolved]
  - Discomfort [Unknown]
  - Inappropriate schedule of product administration [Unknown]
  - Splenomegaly [Unknown]

NARRATIVE: CASE EVENT DATE: 20210210
